FAERS Safety Report 4309175-6 (Version None)
Quarter: 2004Q1

REPORT INFORMATION
  Report Type: 
  Country: None (occurrence: None)
  Receive Date: 20040301
  Receipt Date: 20040211
  Transmission Date: 20041129
  Serious: Yes (Hospitalization)
  Sender: FDA-Public Use
  Company Number: F04200400024

PATIENT
  Age: 69 Year
  Sex: Male

DRUGS (4)
  1. ELOXATIN [Suspect]
     Indication: COLORECTAL CANCER METASTATIC
     Dosage: NOT REPORTED; INTRAVENOUS DRIP (A FEW HOURS - TIME TO ONSET: 0 DAYS)
     Route: 041
     Dates: start: 20031103, end: 20031103
  2. 5-FU - (5 FLUOROURACIL) - SOLUTION - UNIT DOSE: UNKNOWN [Suspect]
     Indication: COLORECTAL CANCER METASTATIC
     Dosage: NOT REPORTED; INTRAVENOUS DRIP  (1 DAY - TIME TO ONSET: UNKNOWN)
     Route: 041
     Dates: start: 20030101, end: 20030101
  3. LEUCOVORIN - (LEUCOVORIN) - SOLUTION - UNIT DOSE: UNKNOWN [Suspect]
     Indication: COLORECTAL CANCER METASTATIC
     Dosage: NOT REPORTED; INTRAVENOUS DRIP
     Route: 041
     Dates: start: 20030101, end: 20030101
  4. PTK787/ZK222584 OR PLACEBO [Concomitant]

REACTIONS (2)
  - DRUG HYPERSENSITIVITY [None]
  - HYPERTENSIVE CRISIS [None]
